FAERS Safety Report 6209269-4 (Version None)
Quarter: 2009Q2

REPORT INFORMATION
  Report Type: 
  Country: None (occurrence: None)
  Receive Date: 20090529
  Receipt Date: 20090522
  Transmission Date: 20091009
  Serious: Yes (Hospitalization)
  Sender: FDA-Public Use
  Company Number: ES-ELI_LILLY_AND_COMPANY-ES200905004878

PATIENT
  Age: 77 Year
  Sex: Female

DRUGS (9)
  1. FORTEO [Suspect]
     Indication: OSTEOPOROSIS
     Dosage: 20 UG, UNKNOWN
     Route: 058
     Dates: start: 20081001
  2. PARACETAMOL [Concomitant]
     Indication: ANALGESIC THERAPY
     Dosage: UNK, UNKNOWN
     Route: 065
  3. ACTOS [Concomitant]
     Indication: DIABETES MELLITUS
     Dosage: UNK, UNKNOWN
     Route: 065
  4. EUTIROX [Concomitant]
     Indication: HYPOTHYROIDISM
     Dosage: 75 MG, UNKNOWN
     Route: 065
  5. ORFIDAL [Concomitant]
     Indication: SLEEP DISORDER
     Dosage: UNK, UNKNOWN
     Route: 065
  6. FEMARA [Concomitant]
     Indication: BREAST CANCER
     Dosage: UNK, UNKNOWN
     Route: 065
  7. CARDYL [Concomitant]
     Indication: BLOOD CHOLESTEROL
     Dosage: UNK, UNKNOWN
     Route: 065
  8. CALCIFEROL [Concomitant]
     Indication: ANAEMIA
     Dosage: UNK, UNKNOWN
     Route: 065
  9. MORPHINE [Concomitant]
     Indication: PAIN
     Dosage: 12 G, UNKNOWN
     Route: 065

REACTIONS (5)
  - DIARRHOEA [None]
  - DIVERTICULITIS [None]
  - INTESTINAL HAEMORRHAGE [None]
  - URINARY TRACT INFECTION [None]
  - URINARY TRACT PAIN [None]
